FAERS Safety Report 5030657-6 (Version None)
Quarter: 2006Q2

REPORT INFORMATION
  Report Type: 
  Country: None (occurrence: None)
  Receive Date: 20060615
  Receipt Date: 20060606
  Transmission Date: 20061013
  Serious: Yes (Hospitalization)
  Sender: FDA-Public Use
  Company Number: HQWYE042408JUN06

PATIENT
  Age: 48 Year
  Sex: Female

DRUGS (6)
  1. EFFEXOR [Suspect]
     Indication: BIPOLAR II DISORDER
     Dosage: 150 MG 1X PER 1 DAY; 150 MG 1X PER 1 DAY
     Dates: start: 20040201, end: 20040701
  2. EFFEXOR [Suspect]
     Indication: DEPRESSION
     Dosage: 150 MG 1X PER 1 DAY; 150 MG 1X PER 1 DAY
     Dates: start: 20040201, end: 20040701
  3. EFFEXOR [Suspect]
     Indication: BIPOLAR II DISORDER
     Dosage: 150 MG 1X PER 1 DAY; 150 MG 1X PER 1 DAY
     Dates: start: 20040718
  4. EFFEXOR [Suspect]
     Indication: DEPRESSION
     Dosage: 150 MG 1X PER 1 DAY; 150 MG 1X PER 1 DAY
     Dates: start: 20040718
  5. VALPROATE SODIUM [Suspect]
     Indication: BIPOLAR I DISORDER
     Dosage: 700 MG 1X PER 1 DAY
     Dates: start: 20040101, end: 20040701
  6. VALPROATE SODIUM [Suspect]
     Indication: DEPRESSION
     Dosage: 700 MG 1X PER 1 DAY
     Dates: start: 20040101, end: 20040701

REACTIONS (16)
  - DRUG HYPERSENSITIVITY [None]
  - DRUG INEFFECTIVE [None]
  - FEELING OF DESPAIR [None]
  - FEELINGS OF WORTHLESSNESS [None]
  - HEPATITIS [None]
  - HYPOMANIA [None]
  - IRRITABILITY [None]
  - LOGORRHOEA [None]
  - MOOD SWINGS [None]
  - PANCYTOPENIA [None]
  - PHARYNGITIS [None]
  - PNEUMONITIS [None]
  - PSYCHOMOTOR HYPERACTIVITY [None]
  - RASH GENERALISED [None]
  - RASH MACULO-PAPULAR [None]
  - SUICIDAL IDEATION [None]
